FAERS Safety Report 4357351-9 (Version None)
Quarter: 2004Q2

REPORT INFORMATION
  Report Type: 
  Country: None (occurrence: None)
  Receive Date: 20040511
  Receipt Date: 20040511
  Transmission Date: 20050107
  Serious: Yes (Hospitalization)
  Sender: FDA-Public Use
  Company Number: None

PATIENT
  Age: 66 Year
  Sex: Male
  Weight: 66.7 kg

DRUGS (3)
  1. PEPTO BISMOL [Suspect]
  2. ADVIL [Suspect]
     Indication: PAIN IN EXTREMITY
     Dosage: 4TABS/WK
  3. ALEVE [Suspect]

REACTIONS (3)
  - ASTHENIA [None]
  - GASTRITIS EROSIVE [None]
  - MELAENA [None]
